FAERS Safety Report 11324101 (Version 1)
Quarter: 2015Q3

REPORT INFORMATION
  Report Type: Spontaneous
  Country: US (occurrence: US)
  Receive Date: 20150730
  Receipt Date: 20150730
  Transmission Date: 20151125
  Serious: Yes (Other)
  Sender: FDA-Public Use
  Company Number: US-SHIRE-US201508703

PATIENT
  Age: 25 Year
  Sex: Male
  Weight: 86.17 kg

DRUGS (2)
  1. ADDERALL XR [Suspect]
     Active Substance: AMPHETAMINE ASPARTATE\AMPHETAMINE SULFATE\DEXTROAMPHETAMINE SACCHARATE\DEXTROAMPHETAMINE SULFATE
     Indication: ATTENTION DEFICIT/HYPERACTIVITY DISORDER
     Dosage: 30 MG, 2X/DAY:BID (30 MG IN THE MORNING AND 30 MG AT NIGHT, NIGHT DOSE ONLY IF HE NEEDS IT)
     Route: 048
  2. ADDERALL XR [Suspect]
     Active Substance: AMPHETAMINE ASPARTATE\AMPHETAMINE SULFATE\DEXTROAMPHETAMINE SACCHARATE\DEXTROAMPHETAMINE SULFATE
     Dosage: 60 MG (TWO 30 MG), 2X/DAY:BID (IN THE MORNING AND AT NIGHT)
     Route: 048
     Dates: start: 20150510, end: 20150514

REACTIONS (12)
  - Drug dose titration not performed [Recovered/Resolved]
  - Drug dose omission [Not Recovered/Not Resolved]
  - Prescribed overdose [Recovered/Resolved]
  - Imprisonment [Unknown]
  - Inappropriate schedule of drug administration [Recovered/Resolved]
  - Legal problem [Recovered/Resolved]
  - Insomnia [Recovered/Resolved]
  - Depression [Not Recovered/Not Resolved]
  - Drug screen positive [Unknown]
  - Decreased appetite [Recovered/Resolved]
  - Feeling abnormal [Recovered/Resolved]
  - Weight decreased [Recovered/Resolved]

NARRATIVE: CASE EVENT DATE: 2015
